FAERS Safety Report 4999382-1 (Version None)
Quarter: 2006Q2

REPORT INFORMATION
  Report Type: 
  Country: None (occurrence: None)
  Receive Date: 20060509
  Receipt Date: 20060501
  Transmission Date: 20061013
  Serious: Yes (Hospitalization)
  Sender: FDA-Public Use
  Company Number: 189402

PATIENT
  Age: 50 Year
  Sex: Female

DRUGS (7)
  1. AVONEX [Suspect]
     Indication: MULTIPLE SCLEROSIS
     Dosage: 30 UG;QW;IM
     Route: 030
     Dates: start: 20010201
  2. AVONEX [Suspect]
     Indication: MULTIPLE SCLEROSIS
     Dosage: 30 UG;QW;IM
     Route: 030
  3. ATENOLOL [Concomitant]
  4. BACLOFEN [Concomitant]
  5. DETROL LA [Concomitant]
  6. ALEVE (CAPLET) [Concomitant]
  7. ORAL CONTRACEPTIVE (NOS) [Concomitant]

REACTIONS (5)
  - ANKLE FRACTURE [None]
  - FALL [None]
  - IMMOBILE [None]
  - INTERVERTEBRAL DISCITIS [None]
  - URINARY TRACT INFECTION [None]
